FAERS Safety Report 19563046 (Version 1)
Quarter: 2021Q3

REPORT INFORMATION
  Report Type: Spontaneous
  Country: US (occurrence: US)
  Receive Date: 20210714
  Receipt Date: 20210714
  Transmission Date: 20211014
  Serious: No
  Sender: FDA-Public Use
  Company Number: US-MYLANLABS-2021M1035088

PATIENT
  Sex: Male

DRUGS (1)
  1. FENTANYL TRANSDERMAL SYSTEM [Suspect]
     Active Substance: FENTANYL
     Indication: PRODUCT USED FOR UNKNOWN INDICATION
     Dosage: 37.5 MILLIGRAM, QH, EVERY 48 HOURS
     Route: 062

REACTIONS (4)
  - Hyperhidrosis [Unknown]
  - Inappropriate schedule of product administration [Unknown]
  - Therapeutic product effect increased [Unknown]
  - Nightmare [Unknown]
